FAERS Safety Report 22788875 (Version 3)
Quarter: 2023Q4

REPORT INFORMATION
  Report Type: Spontaneous
  Country: CN (occurrence: CN)
  Receive Date: 20230804
  Receipt Date: 20231006
  Transmission Date: 20240110
  Serious: Yes (Life-Threatening, Hospitalization)
  Sender: FDA-Public Use
  Company Number: CN-BAYER-2023A109868

PATIENT
  Age: 72 Year
  Sex: Female
  Weight: 55 kg

DRUGS (2)
  1. ULTRAVIST [Suspect]
     Active Substance: IOPROMIDE
     Indication: Angiogram
     Dosage: 76.89 G, ONCE
     Route: 041
     Dates: start: 20230614, end: 20230614
  2. ULTRAVIST [Suspect]
     Active Substance: IOPROMIDE
     Indication: Syncope

REACTIONS (8)
  - Anaphylactic shock [Recovering/Resolving]
  - Nausea [None]
  - Vomiting [None]
  - Blood pressure decreased [Recovering/Resolving]
  - Confusional state [None]
  - PO2 increased [None]
  - Respiratory rate increased [None]
  - Incorrect drug administration rate [None]

NARRATIVE: CASE EVENT DATE: 20230614
